FAERS Safety Report 19391765 (Version 2)
Quarter: 2021Q3

REPORT INFORMATION
  Report Type: Spontaneous
  Country: IT (occurrence: IT)
  Receive Date: 20210608
  Receipt Date: 20210806
  Transmission Date: 20211014
  Serious: Yes (Death, Other)
  Sender: FDA-Public Use
  Company Number: IT-JAZZ-2021-IT-010249

PATIENT
  Sex: Male

DRUGS (2)
  1. VYXEOS [Suspect]
     Active Substance: CYTARABINE\DAUNORUBICIN
     Indication: ACUTE MYELOID LEUKAEMIA
     Dosage: FIRST INDUCTION
     Dates: start: 20200912, end: 20200914
  2. VYXEOS [Suspect]
     Active Substance: CYTARABINE\DAUNORUBICIN
     Dosage: 44 MG+100 MG
     Dates: start: 20200914, end: 20200916

REACTIONS (3)
  - Multiple organ dysfunction syndrome [Fatal]
  - Disease progression [Unknown]
  - Transplant failure [Fatal]
